FAERS Safety Report 7809937-4 (Version None)
Quarter: 2011Q4

REPORT INFORMATION
  Report Type: 
  Country: None (occurrence: None)
  Receive Date: 20111012
  Receipt Date: 20111005
  Transmission Date: 20120403
  Serious: No
  Sender: FDA-Public Use
  Company Number: US-PFIZER INC-2011238713

PATIENT
  Sex: Female

DRUGS (1)
  1. XANAX [Suspect]
     Indication: PANIC ATTACK
     Dosage: 0.25 MG, UNK
     Dates: start: 19970101

REACTIONS (2)
  - DRUG PRESCRIBING ERROR [None]
  - NERVOUSNESS [None]
